FAERS Safety Report 5726427-3 (Version None)
Quarter: 2008Q2

REPORT INFORMATION
  Report Type: 
  Country: None (occurrence: None)
  Receive Date: 20080502
  Receipt Date: 20080424
  Transmission Date: 20081010
  Serious: Yes (Other)
  Sender: FDA-Public Use
  Company Number: B0361174A

PATIENT
  Sex: Female

DRUGS (3)
  1. PAROXETINE HCL [Suspect]
     Dosage: 20MG PER DAY
     Route: 065
     Dates: start: 19950307
  2. PROTHIADEN [Concomitant]
     Route: 065
     Dates: start: 19930607
  3. CITALOPRAM HYDROBROMIDE [Concomitant]
     Route: 065
     Dates: start: 19960710

REACTIONS (17)
  - ABNORMAL BEHAVIOUR [None]
  - AGITATION [None]
  - ANXIETY [None]
  - ASTHENIA [None]
  - BALANCE DISORDER [None]
  - CRYING [None]
  - DEPENDENCE [None]
  - DEPRESSED MOOD [None]
  - DEPRESSION [None]
  - DRUG WITHDRAWAL SYNDROME [None]
  - FATIGUE [None]
  - PANIC ATTACK [None]
  - PSYCHIATRIC SYMPTOM [None]
  - SEASONAL AFFECTIVE DISORDER [None]
  - SELF ESTEEM DECREASED [None]
  - SOCIAL AVOIDANT BEHAVIOUR [None]
  - SUICIDAL IDEATION [None]
